FAERS Safety Report 5704389-2 (Version None)
Quarter: 2008Q2

REPORT INFORMATION
  Report Type: 
  Country: None (occurrence: None)
  Receive Date: 20080414
  Receipt Date: 20080403
  Transmission Date: 20081010
  Serious: Yes (Other)
  Sender: FDA-Public Use
  Company Number: B0360230A

PATIENT
  Age: 27 Year
  Sex: Female

DRUGS (6)
  1. PAROXETINE HCL [Suspect]
     Route: 065
     Dates: start: 20010613
  2. EFFEXOR [Concomitant]
     Dates: start: 20050831
  3. CITALOPRAM HYDROBROMIDE [Concomitant]
     Dates: start: 20021030
  4. PROZAC [Concomitant]
     Dates: start: 20010516
  5. ZISPIN [Concomitant]
     Dates: start: 20020910
  6. DEPAKOTE [Concomitant]

REACTIONS (15)
  - ANXIETY [None]
  - CONDITION AGGRAVATED [None]
  - DEPRESSED MOOD [None]
  - DEPRESSION [None]
  - DRUG WITHDRAWAL SYNDROME [None]
  - FATIGUE [None]
  - FEAR [None]
  - HALLUCINATION, AUDITORY [None]
  - HALLUCINATION, VISUAL [None]
  - HEADACHE [None]
  - MALAISE [None]
  - MIGRAINE [None]
  - MOOD SWINGS [None]
  - PAIN [None]
  - VISUAL DISTURBANCE [None]
